FAERS Safety Report 13144818 (Version 1)
Quarter: 2017Q1

REPORT INFORMATION
  Report Type: Spontaneous
  Country: US (occurrence: US)
  Receive Date: 20170124
  Receipt Date: 20170124
  Transmission Date: 20170428
  Serious: No
  Sender: FDA-Public Use
  Company Number: US-TEVA-647937USA

PATIENT
  Age: 71 Year
  Sex: Female
  Weight: 79.45 kg

DRUGS (1)
  1. HYDROXYZINE [Suspect]
     Active Substance: HYDROXYZINE HYDROCHLORIDE
     Indication: RASH
     Dates: start: 20160212, end: 20160326

REACTIONS (6)
  - Headache [Unknown]
  - Arthralgia [Recovered/Resolved]
  - Fall [Unknown]
  - Nasal congestion [Unknown]
  - Vitreous floaters [Unknown]
  - Swelling [Unknown]

NARRATIVE: CASE EVENT DATE: 201602
